FAERS Safety Report 8579016-X (Version None)
Quarter: 2012Q3

REPORT INFORMATION
  Report Type: 
  Country: None (occurrence: None)
  Receive Date: 20120808
  Receipt Date: 20120731
  Transmission Date: 20120928
  Serious: Yes (Hospitalization)
  Sender: FDA-Public Use
  Company Number: AT-JNJFOC-20120801821

PATIENT
  Sex: Male
  Weight: 86 kg

DRUGS (7)
  1. RAMIPRIL [Concomitant]
     Indication: CORONARY ARTERY DISEASE
     Route: 048
  2. SANDIMMUNE [Concomitant]
     Indication: COLITIS
     Route: 042
     Dates: start: 20120220, end: 20120229
  3. ENTEROCORT [Concomitant]
     Indication: COLITIS ULCERATIVE
     Route: 048
  4. ASPIRIN [Concomitant]
     Indication: CORONARY ARTERY DISEASE
     Route: 048
     Dates: end: 20120228
  5. SIMVASTATIN [Concomitant]
     Indication: HYPERLIPIDAEMIA
     Route: 048
  6. REMICADE [Suspect]
     Indication: COLITIS ULCERATIVE
     Route: 042
     Dates: start: 20101115, end: 20110901
  7. ENTEROBENE [Concomitant]
     Indication: COLITIS ULCERATIVE
     Route: 048
     Dates: end: 20120225

REACTIONS (1)
  - PROCTITIS ULCERATIVE [None]
